FAERS Safety Report 11093339 (Version 1)
Quarter: 2015Q2

REPORT INFORMATION
  Report Type: Spontaneous
  Country: US (occurrence: None)
  Receive Date: 20150428
  Receipt Date: 20150428
  Transmission Date: 20150821
  Serious: Yes (Hospitalization)
  Sender: FDA-Public Use
  Company Number: PHEH2014US014761

PATIENT
  Age: 50 Year
  Sex: Female
  Weight: 62.2 kg

DRUGS (5)
  1. FLORANEX (LACTOBACILLUS ACIDOPHILUS, LACTOBACILLUS BULGARICUS) [Concomitant]
  2. LISINOPRIL. [Concomitant]
     Active Substance: LISINOPRIL
  3. GILENYA [Suspect]
     Active Substance: FINGOLIMOD HYDROCHLORIDE
     Indication: RELAPSING-REMITTING MULTIPLE SCLEROSIS
     Route: 048
     Dates: start: 20140721, end: 20140722
  4. SIMVASTATIN. [Concomitant]
     Active Substance: SIMVASTATIN
  5. BACLOFEN. [Concomitant]
     Active Substance: BACLOFEN

REACTIONS (2)
  - Atrioventricular block second degree [None]
  - Sinus bradycardia [None]

NARRATIVE: CASE EVENT DATE: 20140721
